FAERS Safety Report 22045769 (Version 1)
Quarter: 2023Q1

REPORT INFORMATION
  Report Type: Spontaneous
  Country: FR (occurrence: FR)
  Receive Date: 20230228
  Receipt Date: 20230228
  Transmission Date: 20230418
  Serious: Yes (Death, Other)
  Sender: FDA-Public Use
  Company Number: None

PATIENT
  Age: 69 Year
  Sex: Male
  Weight: 102 kg

DRUGS (1)
  1. TECARTUS [Suspect]
     Active Substance: BREXUCABTAGENE AUTOLEUCEL
     Indication: Mantle cell lymphoma
     Dosage: 1000 IU, ONCE, 1000 IU, ONCE,  0,4 - 2 X 10? CELLULES, DISPERSION POUR PERFUSION
     Route: 042
     Dates: start: 20221123, end: 20221123

REACTIONS (4)
  - Disseminated intravascular coagulation [Fatal]
  - Cytokine release syndrome [Fatal]
  - Haemophagocytic lymphohistiocytosis [Fatal]
  - Immune effector cell-associated neurotoxicity syndrome [Fatal]

NARRATIVE: CASE EVENT DATE: 20221125
